FAERS Safety Report 7750193-3 (Version None)
Quarter: 2011Q3

REPORT INFORMATION
  Report Type: 
  Country: None (occurrence: None)
  Receive Date: 20110914
  Receipt Date: 20110914
  Transmission Date: 20111222
  Serious: Yes (Other)
  Sender: FDA-Public Use
  Company Number: None

PATIENT
  Age: 21 Year
  Sex: Male
  Weight: 81.646 kg

DRUGS (1)
  1. CLARAVIS [Suspect]
     Indication: ACNE
     Dosage: 40MG
     Route: 048
     Dates: start: 20100826, end: 20110303

REACTIONS (5)
  - ORGASMIC SENSATION DECREASED [None]
  - EJACULATION DISORDER [None]
  - EJACULATION FAILURE [None]
  - LOSS OF LIBIDO [None]
  - ERECTILE DYSFUNCTION [None]
